FAERS Safety Report 7715871-0 (Version None)
Quarter: 2011Q3

REPORT INFORMATION
  Report Type: 
  Country: None (occurrence: None)
  Receive Date: 20110829
  Receipt Date: 20110829
  Transmission Date: 20111222
  Serious: Yes (Other)
  Sender: FDA-Public Use
  Company Number: None

PATIENT
  Sex: Female
  Weight: 72.574 kg

DRUGS (2)
  1. DYAZIDE [Suspect]
     Indication: BLOOD PRESSURE ABNORMAL
     Dosage: ONE CAPSULE
     Route: 048
     Dates: start: 19990110, end: 20090907
  2. DYAZIDE [Suspect]
     Indication: FLUID RETENTION
     Dosage: ONE CAPSULE
     Route: 048
     Dates: start: 19990110, end: 20090907

REACTIONS (6)
  - GAIT DISTURBANCE [None]
  - FOOT FRACTURE [None]
  - SKIN NECROSIS [None]
  - VASCULITIS [None]
  - OSTEOPOROSIS [None]
  - MUSCULOSKELETAL DISORDER [None]
